FAERS Safety Report 18240410 (Version 2)
Quarter: 2020Q3

REPORT INFORMATION
  Report Type: Not Available
  Country: US (occurrence: US)
  Receive Date: 20200908
  Receipt Date: 20200925
  Transmission Date: 20201103
  Serious: No
  Sender: FDA-Public Use
  Company Number: US-NEUROCRINE BIOSCIENCES INC.-2020NBI03212

PATIENT
  Age: 56 Year
  Sex: Female

DRUGS (6)
  1. LITHIUM. [Concomitant]
     Active Substance: LITHIUM
     Dosage: DAILY 5 PM
  2. INGREZZA [Suspect]
     Active Substance: VALBENAZINE
     Indication: TARDIVE DYSKINESIA
     Route: 048
     Dates: start: 20200820, end: 20200910
  3. CLONAZEPAM. [Concomitant]
     Active Substance: CLONAZEPAM
  4. LITHIUM. [Concomitant]
     Active Substance: LITHIUM
     Dosage: AT 3 PM
  5. RISPERIDONE. [Concomitant]
     Active Substance: RISPERIDONE
     Dosage: AT BEDTIME
  6. PALIPERIDONE. [Concomitant]
     Active Substance: PALIPERIDONE

REACTIONS (6)
  - Sluggishness [Recovering/Resolving]
  - Depressed level of consciousness [Recovering/Resolving]
  - Anxiety [Recovering/Resolving]
  - Depression [Recovering/Resolving]
  - Somnolence [Unknown]
  - Drug ineffective [Unknown]

NARRATIVE: CASE EVENT DATE: 2020
